FAERS Safety Report 7591164-X (Version None)
Quarter: 2011Q3

REPORT INFORMATION
  Report Type: 
  Country: None (occurrence: None)
  Receive Date: 20110705
  Receipt Date: 20110624
  Transmission Date: 20111222
  Serious: Yes (Hospitalization)
  Sender: FDA-Public Use
  Company Number: US-ASTRAZENECA-2011SE38315

PATIENT
  Age: 75 Year
  Sex: Male
  Weight: 77.1 kg

DRUGS (17)
  1. ATAZANAVIR [Interacting]
  2. LEVOTHYROXINE SODIUM [Concomitant]
  3. LAMIVUDINE [Concomitant]
  4. LOPERAMIDE [Concomitant]
     Dosage: 2 MG AS NEEDED
  5. CHOLECALCIFEROL [Concomitant]
     Dosage: 400 UNITS DAILY
  6. TRAZODONE HCL [Concomitant]
     Dosage: 50 MG AT BED TIME
  7. CALCITRIOL [Concomitant]
     Dosage: 0,25 UG DAILY
  8. VARDENAFIL HYDROCHLORIDE (LEVITRA) [Concomitant]
     Dosage: 20 MG AS NEEDED
  9. ATROPIN/DIPHENOXYLATE [Concomitant]
     Dosage: 4 TIMES DAILY AS NEEDED
  10. FONDAPARINUX SODIUM [Concomitant]
     Route: 058
  11. LISINOPRIL [Concomitant]
     Route: 048
  12. RANITIDINE [Concomitant]
  13. RITONAVIR [Interacting]
  14. BUDESONIDE [Suspect]
     Indication: COLITIS
     Route: 048
  15. ATENOLOL [Concomitant]
  16. NEVIRAPINE [Concomitant]
  17. TESTOSTERONE [Concomitant]
     Dosage: 5 MG/24 HOURS
     Route: 062

REACTIONS (2)
  - DRUG INTERACTION [None]
  - CUSHING'S SYNDROME [None]
